FAERS Safety Report 25282267 (Version 1)
Quarter: 2025Q2

REPORT INFORMATION
  Report Type: Report from Study
  Country: US (occurrence: US)
  Receive Date: 20250508
  Receipt Date: 20250508
  Transmission Date: 20250716
  Serious: Yes (Other)
  Sender: MYLAN
  Company Number: US-MYLANLABS-2025M1038288

PATIENT
  Sex: Female

DRUGS (16)
  1. DEXMEDETOMIDINE HYDROCHLORIDE [Suspect]
     Active Substance: DEXMEDETOMIDINE HYDROCHLORIDE
     Indication: Maintenance of anaesthesia
     Dosage: 0.4 MICROGRAM/KILOGRAM, QH
  2. DEXMEDETOMIDINE HYDROCHLORIDE [Suspect]
     Active Substance: DEXMEDETOMIDINE HYDROCHLORIDE
     Dosage: 0.4 MICROGRAM/KILOGRAM, QH
     Route: 042
  3. DEXMEDETOMIDINE HYDROCHLORIDE [Suspect]
     Active Substance: DEXMEDETOMIDINE HYDROCHLORIDE
     Dosage: 0.4 MICROGRAM/KILOGRAM, QH
     Route: 042
  4. DEXMEDETOMIDINE HYDROCHLORIDE [Suspect]
     Active Substance: DEXMEDETOMIDINE HYDROCHLORIDE
     Dosage: 0.4 MICROGRAM/KILOGRAM, QH
  5. PROPOFOL [Suspect]
     Active Substance: PROPOFOL
     Indication: Maintenance of anaesthesia
  6. PROPOFOL [Suspect]
     Active Substance: PROPOFOL
     Route: 042
  7. PROPOFOL [Suspect]
     Active Substance: PROPOFOL
     Route: 042
  8. PROPOFOL [Suspect]
     Active Substance: PROPOFOL
  9. KETAMINE [Suspect]
     Active Substance: KETAMINE
     Indication: Maintenance of anaesthesia
     Dosage: 0.2 MILLIGRAM/KILOGRAM, QH
  10. KETAMINE [Suspect]
     Active Substance: KETAMINE
     Dosage: 0.2 MILLIGRAM/KILOGRAM, QH
     Route: 042
  11. KETAMINE [Suspect]
     Active Substance: KETAMINE
     Dosage: 0.2 MILLIGRAM/KILOGRAM, QH
     Route: 042
  12. KETAMINE [Suspect]
     Active Substance: KETAMINE
     Dosage: 0.2 MILLIGRAM/KILOGRAM, QH
  13. MIDAZOLAM [Suspect]
     Active Substance: MIDAZOLAM
     Indication: Maintenance of anaesthesia
  14. MIDAZOLAM [Suspect]
     Active Substance: MIDAZOLAM
     Route: 042
  15. MIDAZOLAM [Suspect]
     Active Substance: MIDAZOLAM
     Route: 042
  16. MIDAZOLAM [Suspect]
     Active Substance: MIDAZOLAM

REACTIONS (1)
  - Drug ineffective [Unknown]
